FAERS Safety Report 24083636 (Version 1)
Quarter: 2024Q3

REPORT INFORMATION
  Report Type: Spontaneous
  Country: GB (occurrence: None)
  Receive Date: 20240712
  Receipt Date: 20240712
  Transmission Date: 20241017
  Serious: Yes (Disabling)
  Sender: ASTRAZENECA
  Company Number: 2024A153987

PATIENT
  Age: 63 Year
  Sex: Female
  Weight: 78 kg

DRUGS (2)
  1. ROSUVASTATIN [Suspect]
     Active Substance: ROSUVASTATIN
     Indication: Adverse drug reaction
     Dosage: 5MG5.0MG UNKNOWN
     Dates: end: 20240501
  2. CITALAPRAM [Concomitant]
     Indication: Adverse drug reaction

REACTIONS (1)
  - Palpitations [Recovered/Resolved]

NARRATIVE: CASE EVENT DATE: 20240430
